FAERS Safety Report 4897921-2 (Version None)
Quarter: 2006Q1

REPORT INFORMATION
  Report Type: 
  Country: None (occurrence: None)
  Receive Date: 20060201
  Receipt Date: 20060123
  Transmission Date: 20060701
  Serious: Yes (Other)
  Sender: FDA-Public Use
  Company Number: US-JNJFOC-20060104870

PATIENT
  Sex: Female

DRUGS (1)
  1. REMICADE [Suspect]
     Route: 042

REACTIONS (1)
  - LUPUS-LIKE SYNDROME [None]
